FAERS Safety Report 18659276 (Version 10)
Quarter: 2023Q2

REPORT INFORMATION
  Report Type: Report from Study
  Country: AU (occurrence: AU)
  Receive Date: 20201224
  Receipt Date: 20230613
  Transmission Date: 20230722
  Serious: Yes (Other)
  Sender: FDA-Public Use
  Company Number: NVSC2020AU333024

PATIENT
  Age: 54 Year
  Sex: Male
  Weight: 91.3 kg

DRUGS (9)
  1. OFATUMUMAB [Suspect]
     Active Substance: OFATUMUMAB
     Indication: Multiple sclerosis relapse
     Dosage: 20 MG, Q4W
     Route: 058
     Dates: start: 20190614
  2. KESIMPTA [Suspect]
     Active Substance: OFATUMUMAB
     Indication: Multiple sclerosis relapse
     Dosage: 1 DOSAGE FORM, QW
     Route: 058
     Dates: start: 20190621
  3. BACLOFEN [Concomitant]
     Active Substance: BACLOFEN
     Indication: Muscle spasticity
     Dosage: UNK
     Route: 065
     Dates: start: 20100601, end: 202104
  4. FISH OIL [Concomitant]
     Active Substance: FISH OIL
     Indication: General physical condition
     Dosage: UNK
     Route: 065
     Dates: start: 20140615
  5. AMANTADINE [Concomitant]
     Active Substance: AMANTADINE
     Indication: Muscle spasticity
     Dosage: 100 MG, BID
     Route: 048
     Dates: start: 20100120, end: 20171011
  6. AMANTADINE [Concomitant]
     Active Substance: AMANTADINE
     Indication: Fatigue
     Dosage: 100 MG, BID
     Route: 048
     Dates: start: 20171012
  7. ACETAMINOPHEN [Concomitant]
     Active Substance: ACETAMINOPHEN
     Indication: Muscle spasticity
     Dosage: 665 MG, BID
     Route: 048
     Dates: start: 20171209, end: 20180108
  8. PERINDOPRIL ERBUMINE [Concomitant]
     Active Substance: PERINDOPRIL ERBUMINE
     Indication: Hypertension
     Dosage: UNK
     Route: 065
     Dates: start: 20170915, end: 202107
  9. SYMMETREL [Concomitant]
     Active Substance: AMANTADINE HYDROCHLORIDE
     Indication: Fatigue
     Dosage: UNK
     Route: 065
     Dates: start: 20171012, end: 202104

REACTIONS (1)
  - Basal cell carcinoma [Recovered/Resolved]

NARRATIVE: CASE EVENT DATE: 20191119
